FAERS Safety Report 5464884-0 (Version None)
Quarter: 2007Q3

REPORT INFORMATION
  Report Type: 
  Country: None (occurrence: None)
  Receive Date: 20070921
  Receipt Date: 20070911
  Transmission Date: 20080115
  Serious: Yes (Other)
  Sender: FDA-Public Use
  Company Number: US-PFIZER INC-2007076443

PATIENT
  Sex: Female
  Weight: 68.181 kg

DRUGS (5)
  1. LYRICA [Suspect]
  2. PERCOCET [Concomitant]
  3. DIAZEPAM [Concomitant]
  4. ZOLOFT [Concomitant]
  5. NEXIUM [Concomitant]

REACTIONS (3)
  - HEADACHE [None]
  - OEDEMA PERIPHERAL [None]
  - UNEVALUABLE EVENT [None]
